FAERS Safety Report 13718391 (Version 1)
Quarter: 2017Q3

REPORT INFORMATION
  Report Type: Spontaneous
  Country: GR (occurrence: GR)
  Receive Date: 20170705
  Receipt Date: 20170705
  Transmission Date: 20171127
  Serious: Yes (Other)
  Sender: FDA-Public Use
  Company Number: GR-PFIZER INC-2017284935

PATIENT
  Sex: Male

DRUGS (1)
  1. XANAX [Suspect]
     Active Substance: ALPRAZOLAM
     Indication: INSOMNIA
     Dosage: 2X0.5 MG IN THE MORNING AND 2X0.5 MG IN THE NIGHT

REACTIONS (2)
  - Intentional product use issue [Unknown]
  - Illusion [Unknown]

NARRATIVE: CASE EVENT DATE: 20170627
